FAERS Safety Report 6523049-1 (Version None)
Quarter: 2009Q4

REPORT INFORMATION
  Report Type: 
  Country: None (occurrence: None)
  Receive Date: 20091222
  Receipt Date: 20091214
  Transmission Date: 20100525
  Serious: Yes (Death)
  Sender: FDA-Public Use
  Company Number: 235569K09USA

PATIENT
  Age: 28 Year
  Sex: Female

DRUGS (4)
  1. REBIF [Suspect]
     Indication: MULTIPLE SCLEROSIS
     Dosage: SUBCUTANEOUS
     Route: 058
     Dates: start: 20080923, end: 20090512
  2. TOPIRAMATE [Concomitant]
  3. MIRTAZAPINE [Concomitant]
  4. CITALOPRAM (CITALOPRAM /00582601/) [Concomitant]

REACTIONS (10)
  - BRONCHOPNEUMONIA [None]
  - COMPLETED SUICIDE [None]
  - DEPRESSION [None]
  - DRUG TOXICITY [None]
  - OVERDOSE [None]
  - PLEURAL HAEMORRHAGE [None]
  - PULMONARY OEDEMA [None]
  - SNORING [None]
  - SOMNOLENCE [None]
  - UNRESPONSIVE TO STIMULI [None]
